FAERS Safety Report 4681284-1 (Version None)
Quarter: 2005Q2

REPORT INFORMATION
  Report Type: 
  Country: None (occurrence: None)
  Receive Date: 20050603
  Receipt Date: 20050520
  Transmission Date: 20051028
  Serious: Yes (Death)
  Sender: FDA-Public Use
  Company Number: US-ROCHE-405620

PATIENT
  Age: 59 Year
  Sex: Female
  Weight: 54.9 kg

DRUGS (6)
  1. XELODA [Suspect]
     Route: 048
  2. DILAUDID [Concomitant]
     Route: 048
     Dates: start: 20050403
  3. MORPHINE SULPHATE ELIXIR [Concomitant]
     Dates: start: 20050403
  4. FENTANYL [Concomitant]
     Route: 061
     Dates: start: 20050403
  5. AUGMENTIN '125' [Concomitant]
     Route: 048
  6. O2 [Concomitant]

REACTIONS (8)
  - ABDOMINAL PAIN [None]
  - ANAEMIA [None]
  - DEEP VEIN THROMBOSIS [None]
  - GENERAL PHYSICAL HEALTH DETERIORATION [None]
  - MALIGNANT NEOPLASM PROGRESSION [None]
  - ORAL INTAKE REDUCED [None]
  - PNEUMONIA [None]
  - PYREXIA [None]
